FAERS Safety Report 8340979-9 (Version None)
Quarter: 2012Q2

REPORT INFORMATION
  Report Type: 
  Country: None (occurrence: None)
  Receive Date: 20120507
  Receipt Date: 20120427
  Transmission Date: 20120825
  Serious: Yes (Hospitalization)
  Sender: FDA-Public Use
  Company Number: US-ABBOTT-12P-163-0908251-00

PATIENT
  Sex: Male
  Weight: 96.702 kg

DRUGS (4)
  1. HUMIRA [Suspect]
     Dosage: DAY 15
  2. PENTASA [Concomitant]
     Indication: PRODUCT USED FOR UNKNOWN INDICATION
  3. HUMIRA [Suspect]
     Dosage: MAINTENANCE
  4. HUMIRA [Suspect]
     Indication: CROHN'S DISEASE
     Dosage: DAY 1
     Dates: start: 20110819

REACTIONS (3)
  - CROHN'S DISEASE [None]
  - PNEUMATOSIS INTESTINALIS [None]
  - NAUSEA [None]
